FAERS Safety Report 5750551-2 (Version None)
Quarter: 2008Q2

REPORT INFORMATION
  Report Type: 
  Country: None (occurrence: None)
  Receive Date: 20080528
  Receipt Date: 20080519
  Transmission Date: 20081010
  Serious: Yes (Hospitalization)
  Sender: FDA-Public Use
  Company Number: DE-ROCHE-559314

PATIENT
  Sex: Male
  Weight: 77 kg

DRUGS (11)
  1. GRANISETRON  HCL [Suspect]
     Indication: ANTIEMETIC SUPPORTIVE CARE
     Route: 048
  2. RITUXIMAB [Suspect]
     Indication: MANTLE CELL LYMPHOMA
     Route: 042
     Dates: start: 20080407
  3. VINCRISTINE [Suspect]
     Indication: DRUG USE FOR UNKNOWN INDICATION
     Route: 042
     Dates: start: 20080407
  4. EMEND [Suspect]
     Indication: ANTIEMETIC SUPPORTIVE CARE
     Route: 048
  5. ALLOPURINOL [Concomitant]
     Route: 048
  6. AMLODIPINE [Concomitant]
     Route: 048
  7. DOXORUBICIN HCL [Concomitant]
     Dates: start: 20080407
  8. CYCLOPHOSPHAMIDE [Concomitant]
     Dates: start: 20080407
  9. PREDNISOLONE [Concomitant]
     Dates: start: 20080407
  10. NULYTELY [Concomitant]
  11. NULYTELY [Concomitant]

REACTIONS (2)
  - CONSTIPATION [None]
  - ILEUS [None]
